FAERS Safety Report 6441190-9 (Version None)
Quarter: 2009Q4

REPORT INFORMATION
  Report Type: 
  Country: None (occurrence: None)
  Receive Date: 20091116
  Receipt Date: 20091104
  Transmission Date: 20100525
  Serious: Yes (Hospitalization)
  Sender: FDA-Public Use
  Company Number: PE-ELI_LILLY_AND_COMPANY-PE200911001142

PATIENT
  Sex: Female

DRUGS (2)
  1. HUMULIN N [Suspect]
     Indication: TYPE 2 DIABETES MELLITUS
     Dosage: UNK, EACH MORNING
     Route: 065
  2. HUMULIN N [Suspect]
     Dosage: UNK, EACH EVENING
     Route: 065

REACTIONS (4)
  - BLOOD GLUCOSE INCREASED [None]
  - HOSPITALISATION [None]
  - HYPOGLYCAEMIA [None]
  - THERAPEUTIC RESPONSE DECREASED [None]
